FAERS Safety Report 6658652-1 (Version None)
Quarter: 2010Q1

REPORT INFORMATION
  Report Type: 
  Country: None (occurrence: None)
  Receive Date: 20100330
  Receipt Date: 20100311
  Transmission Date: 20100710
  Serious: Yes (Other)
  Sender: FDA-Public Use
  Company Number: PHHY2010AU14833

PATIENT
  Sex: Male

DRUGS (3)
  1. EXFORGE [Suspect]
     Indication: HYPERTENSION
     Dosage: 2 DF, QD
     Route: 048
     Dates: start: 20091225
  2. METFORMIN HCL [Concomitant]
  3. LIPIDIL [Concomitant]

REACTIONS (6)
  - BURNING SENSATION [None]
  - DRY SKIN [None]
  - ERYTHEMA [None]
  - PRURITUS [None]
  - SKIN EXFOLIATION [None]
  - SWELLING [None]
